FAERS Safety Report 4772938-7 (Version None)
Quarter: 2005Q3

REPORT INFORMATION
  Report Type: 
  Country: None (occurrence: None)
  Receive Date: 20050916
  Receipt Date: 20050906
  Transmission Date: 20060218
  Serious: Yes (Other)
  Sender: FDA-Public Use
  Company Number: 2005-03324

PATIENT
  Sex: Female

DRUGS (1)
  1. KENTERA (WATSON LABORATORIES) (OXYBUTYNIN) TRANSDERMAL PATCH, 3.9MG [Suspect]
     Dosage: TRANSDERMAL
     Route: 062

REACTIONS (4)
  - EPILEPSY [None]
  - PAIN [None]
  - POSTMENOPAUSAL HAEMORRHAGE [None]
  - VULVOVAGINAL DISCOMFORT [None]
